FAERS Safety Report 10907804 (Version 1)
Quarter: 2015Q1

REPORT INFORMATION
  Report Type: Spontaneous
  Country: US (occurrence: US)
  Receive Date: 20150312
  Receipt Date: 20150312
  Transmission Date: 20150721
  Serious: No
  Sender: FDA-Public Use
  Company Number: US-INCYTE CORPORATION-2014IN003571

PATIENT
  Age: 73 Year
  Sex: Male

DRUGS (14)
  1. JAKAFI [Suspect]
     Active Substance: RUXOLITINIB
     Indication: MYELOFIBROSIS
     Dosage: 20 MG, BID
     Route: 048
     Dates: start: 20130910
  2. PREDNISONE. [Concomitant]
     Active Substance: PREDNISONE
  3. AMITIZA [Concomitant]
     Active Substance: LUBIPROSTONE
  4. ATORVASTATIN [Concomitant]
     Active Substance: ATORVASTATIN
  5. LEVOTHROID [Concomitant]
     Active Substance: LEVOTHYROXINE SODIUM
  6. PROVIGIL [Concomitant]
     Active Substance: MODAFINIL
  7. METOPROLOL SUCCINATE. [Concomitant]
     Active Substance: METOPROLOL SUCCINATE
  8. NITROSTAT [Concomitant]
     Active Substance: NITROGLYCERIN
  9. GABAPENTIN. [Concomitant]
     Active Substance: GABAPENTIN
  10. OXYCODONE [Concomitant]
     Active Substance: OXYCODONE
  11. KLONOPIN [Concomitant]
     Active Substance: CLONAZEPAM
  12. EFFIENT [Concomitant]
     Active Substance: PRASUGREL HYDROCHLORIDE
  13. HYDROXYUREA. [Concomitant]
     Active Substance: HYDROXYUREA
  14. PROTONIX [Concomitant]
     Active Substance: PANTOPRAZOLE SODIUM

REACTIONS (1)
  - Gout [Unknown]

NARRATIVE: CASE EVENT DATE: 20141119
